FAERS Safety Report 4552522-0 (Version None)
Quarter: 2005Q1

REPORT INFORMATION
  Report Type: 
  Country: None (occurrence: None)
  Receive Date: 20050114
  Receipt Date: 20040714
  Transmission Date: 20050727
  Serious: No
  Sender: FDA-Public Use
  Company Number: US-GLAXOSMITHKLINE-A0518229A

PATIENT
  Age: 33 Year
  Sex: Female

DRUGS (14)
  1. IMITREX [Suspect]
     Indication: MIGRAINE
     Dosage: 1INJ AS REQUIRED
     Route: 058
  2. LISINOPRIL [Concomitant]
  3. SYNTHROID [Concomitant]
  4. EFFEXOR [Concomitant]
  5. CELEXA [Concomitant]
  6. METFORMIN HCL [Concomitant]
  7. REGLAN [Concomitant]
  8. ZOCOR [Concomitant]
  9. NEURONTIN [Concomitant]
  10. TRILEPTAL [Concomitant]
  11. CARDURA [Concomitant]
  12. SONATA [Concomitant]
  13. ZYRTEC [Concomitant]
  14. TRAMADOL HCL [Concomitant]

REACTIONS (7)
  - CHEST DISCOMFORT [None]
  - DIARRHOEA [None]
  - DRUG INEFFECTIVE [None]
  - DYSPNOEA [None]
  - HYPERHIDROSIS [None]
  - INSOMNIA [None]
  - RESTLESSNESS [None]
